FAERS Safety Report 8959722 (Version 2)
Quarter: 2012Q4

REPORT INFORMATION
  Report Type: 
  Country: JP (occurrence: JP)
  Receive Date: 20121212
  Receipt Date: 20121227
  Transmission Date: 20130627
  Serious: Yes (Death, Other)
  Sender: FDA-Public Use
  Company Number: JP-MERCK-1212JPN002947

PATIENT
  Age: 45 Year
  Sex: Male
  Weight: 61 kg

DRUGS (4)
  1. AMITRIPTYLINE HYDROCHLORIDE [Suspect]
     Indication: DEPRESSION
     Route: 048
  2. THYRADIN [Concomitant]
     Route: 048
  3. SEVOFLURANE [Concomitant]
     Route: 055
  4. REMIFENTANIL HYDROCHLORIDE [Concomitant]
     Route: 041

REACTIONS (1)
  - Hypotension [Fatal]
